FAERS Safety Report 9131732 (Version 1)
Quarter: 2013Q1

REPORT INFORMATION
  Report Type: Report from Study
  Country: US (occurrence: US)
  Receive Date: 20130301
  Receipt Date: 20130301
  Transmission Date: 20140127
  Serious: No
  Sender: FDA-Public Use
  Company Number: US-MYLANLABS-2012S1012727

PATIENT
  Age: 18 Year
  Sex: Female
  Weight: 58.97 kg

DRUGS (5)
  1. AMNESTEEM CAPSULES [Suspect]
     Indication: ACNE
     Route: 048
     Dates: start: 20120522, end: 20120605
  2. AMNESTEEM CAPSULES [Suspect]
     Indication: ACNE
     Route: 048
     Dates: start: 20120522, end: 20120605
  3. ETONOGESTREL [Concomitant]
  4. ETHINYL ESTRADIOL [Concomitant]
  5. PROPOXYPHENE NAPSYLATE AND ACETAMINOPHEN [Concomitant]
     Dates: start: 200912

REACTIONS (7)
  - Epistaxis [Not Recovered/Not Resolved]
  - Mood altered [Not Recovered/Not Resolved]
  - Headache [Not Recovered/Not Resolved]
  - Visual impairment [Not Recovered/Not Resolved]
  - Back pain [Not Recovered/Not Resolved]
  - Myalgia [Not Recovered/Not Resolved]
  - Affect lability [Not Recovered/Not Resolved]
